FAERS Safety Report 5547255-8 (Version None)
Quarter: 2007Q4

REPORT INFORMATION
  Report Type: 
  Country: None (occurrence: None)
  Receive Date: 20071211
  Receipt Date: 20071204
  Transmission Date: 20080405
  Serious: Yes (Other)
  Sender: FDA-Public Use
  Company Number: B0496927A

PATIENT
  Age: 52 Year
  Sex: Female

DRUGS (1)
  1. NARAMIG [Suspect]
     Indication: MIGRAINE
     Dosage: 2.5MG SEE DOSAGE TEXT
     Route: 048
     Dates: start: 20020101, end: 20071112

REACTIONS (5)
  - ABDOMINAL PAIN [None]
  - DRUG ABUSE [None]
  - NAUSEA [None]
  - VOMITING [None]
  - WITHDRAWAL SYNDROME [None]
